FAERS Safety Report 13127593 (Version 1)
Quarter: 2017Q1

REPORT INFORMATION
  Report Type: Spontaneous
  Country: US (occurrence: US)
  Receive Date: 20170118
  Receipt Date: 20170118
  Transmission Date: 20170428
  Serious: Yes (Hospitalization, Other)
  Sender: FDA-Public Use
  Company Number: US-SAOL THERAPEUTICS-2017SAO00055

PATIENT
  Sex: Female

DRUGS (2)
  1. BACLOFEN. [Suspect]
     Active Substance: BACLOFEN
  2. MOBIC [Suspect]
     Active Substance: MELOXICAM

REACTIONS (4)
  - Acute kidney injury [Unknown]
  - Suicide attempt [Unknown]
  - Respiratory failure [Unknown]
  - Intentional overdose [Unknown]
